FAERS Safety Report 4944178-X (Version None)
Quarter: 2006Q1

REPORT INFORMATION
  Report Type: 
  Country: None (occurrence: None)
  Receive Date: 20060309
  Receipt Date: 20060222
  Transmission Date: 20060701
  Serious: Yes (Other)
  Sender: FDA-Public Use
  Company Number: 2006US-01708

PATIENT
  Age: 36 Year
  Sex: Female
  Weight: 54.4 kg

DRUGS (2)
  1. ISOTRETINOIN [Suspect]
     Dosage: 20 MG, TID, ORAL
     Route: 048
     Dates: start: 20060109, end: 20060209
  2. ZOVIA 1/35E-21 [Concomitant]

REACTIONS (1)
  - RECTAL HAEMORRHAGE [None]
